FAERS Safety Report 10706733 (Version 1)
Quarter: 2015Q1

REPORT INFORMATION
  Report Type: Spontaneous
  Country: US (occurrence: None)
  Receive Date: 20150109
  Receipt Date: 20150109
  Transmission Date: 20150721
  Serious: Yes (Other)
  Sender: FDA-Public Use
  Company Number: US-H14001-14-01892

PATIENT
  Age: 19 Year
  Sex: Male

DRUGS (1)
  1. FENTANYL (FENTANYL) (UNKNOWN) (FENTANYL) [Suspect]
     Active Substance: FENTANYL
     Indication: ANALGESIC THERAPY
     Dosage: 250 MCG/HR
     Route: 041

REACTIONS (7)
  - Tachycardia [None]
  - Hypertension [None]
  - Muscle rigidity [None]
  - Hyperthermia [None]
  - Hypersensitivity [None]
  - Drug interaction [None]
  - Infusion related reaction [None]
